FAERS Safety Report 8520747 (Version 2)
Quarter: 2012Q4

REPORT INFORMATION
  Report Type: 
  Country: US (occurrence: US)
  Receive Date: 20120418
  Receipt Date: 20121017
  Transmission Date: 20130627
  Serious: Yes (Other)
  Sender: FDA-Public Use
  Company Number: US-ASTRAZENECA-2011SE52008

PATIENT
  Age: 61 Year
  Sex: Female

DRUGS (5)
  1. CRESTOR [Suspect]
     Route: 048
  2. PRILOSEC [Suspect]
     Route: 048
  3. NEXIUM [Suspect]
     Route: 048
  4. STEROID [Concomitant]
  5. METHOTREXATE [Concomitant]

REACTIONS (23)
  - Intestinal haemorrhage [Unknown]
  - Fall [Unknown]
  - Swelling [Unknown]
  - Joint range of motion decreased [Unknown]
  - Rheumatoid arthritis [Unknown]
  - Arthritis [Unknown]
  - Dyspnoea [Unknown]
  - Dyspepsia [Unknown]
  - Gastric disorder [Unknown]
  - Gastric mucosal lesion [Unknown]
  - Condition aggravated [Unknown]
  - Burning sensation [Unknown]
  - Activities of daily living impaired [Unknown]
  - Pain [Unknown]
  - Musculoskeletal pain [Unknown]
  - Gastrointestinal tract irritation [Unknown]
  - Gait disturbance [Unknown]
  - Insomnia [Unknown]
  - Arthralgia [Unknown]
  - Abdominal pain upper [Unknown]
  - Drug effect incomplete [Unknown]
  - Drug ineffective [Unknown]
  - Circumstance or information capable of leading to medication error [Unknown]
